APPROVED DRUG PRODUCT: KEFLET
Active Ingredient: CEPHALEXIN
Strength: EQ 500MG BASE
Dosage Form/Route: TABLET;ORAL
Application: A062745 | Product #002
Applicant: ELI LILLY AND CO
Approved: Dec 1, 1986 | RLD: No | RS: No | Type: DISCN